FAERS Safety Report 4674830-5 (Version None)
Quarter: 2005Q2

REPORT INFORMATION
  Report Type: 
  Country: None (occurrence: None)
  Receive Date: 20050526
  Receipt Date: 20050516
  Transmission Date: 20051028
  Serious: Yes (Other)
  Sender: FDA-Public Use
  Company Number: TN-BRISTOL-MYERS SQUIBB COMPANY-12970091

PATIENT
  Age: 55 Year
  Sex: Female

DRUGS (4)
  1. STREPTOMYCIN [Suspect]
     Indication: TUBERCULOSIS
     Route: 030
  2. ISONIAZID [Suspect]
     Route: 048
  3. RIFAMPICIN [Suspect]
  4. PYRAZINAMIDE [Suspect]

REACTIONS (1)
  - TOXIC EPIDERMAL NECROLYSIS [None]
